FAERS Safety Report 21114827 (Version 2)
Quarter: 2022Q3

REPORT INFORMATION
  Report Type: Spontaneous
  Country: US (occurrence: US)
  Receive Date: 20220721
  Receipt Date: 20220923
  Transmission Date: 20221027
  Serious: Yes (Other)
  Sender: FDA-Public Use
  Company Number: US-Blueprint Medicines Corporation-273

PATIENT
  Sex: Male

DRUGS (4)
  1. AYVAKIT [Suspect]
     Active Substance: AVAPRITINIB
     Indication: Haematopoietic neoplasm
     Route: 048
     Dates: start: 20210724
  2. AYVAKIT [Suspect]
     Active Substance: AVAPRITINIB
     Route: 048
     Dates: start: 20210724
  3. AYVAKIT [Suspect]
     Active Substance: AVAPRITINIB
     Dosage: NOW TAKING 50MG ALTERNATING WITH 100MG EVERY OTHER DAY
     Route: 048
  4. AYVAKIT [Suspect]
     Active Substance: AVAPRITINIB
     Route: 048

REACTIONS (16)
  - Retinal oedema [Unknown]
  - Retinal degeneration [Unknown]
  - Condition aggravated [Unknown]
  - Microembolism [Unknown]
  - Purpura [Unknown]
  - Rash vesicular [Unknown]
  - Pain in extremity [Unknown]
  - Eye swelling [Unknown]
  - Dysstasia [Unknown]
  - Malaise [Unknown]
  - Anaemia [Unknown]
  - Lacrimation increased [Unknown]
  - Fatigue [Unknown]
  - Platelet count decreased [Unknown]
  - Product dose omission issue [Unknown]
  - Off label use [Unknown]
